FAERS Safety Report 12262328 (Version 1)
Quarter: 2016Q2

REPORT INFORMATION
  Report Type: Spontaneous
  Country: None (occurrence: None)
  Receive Date: 20160412
  Receipt Date: 20160412
  Transmission Date: 20160815
  Serious: No
  Sender: FDA-Public Use
  Company Number: None

PATIENT
  Age: 62 Year
  Sex: Male

DRUGS (2)
  1. JANUVIA [Suspect]
     Active Substance: SITAGLIPTIN PHOSPHATE
  2. INVOKANA [Suspect]
     Active Substance: CANAGLIFLOZIN

REACTIONS (5)
  - Arrhythmia [None]
  - Nephropathy [None]
  - Renal disorder [None]
  - Glycosylated haemoglobin increased [None]
  - Dialysis [None]
